FAERS Safety Report 16362003 (Version 1)
Quarter: 2019Q2

REPORT INFORMATION
  Report Type: Spontaneous
  Country: US (occurrence: US)
  Receive Date: 20190528
  Receipt Date: 20190528
  Transmission Date: 20190711
  Serious: No
  Sender: FDA-Public Use
  Company Number: US-PFIZER INC-2019221409

PATIENT

DRUGS (1)
  1. ADVIL [Suspect]
     Active Substance: IBUPROFEN
     Dosage: UNK

REACTIONS (6)
  - Dysphagia [Unknown]
  - Speech disorder [Unknown]
  - Foreign body in respiratory tract [Unknown]
  - Throat irritation [Unknown]
  - Sensation of foreign body [Unknown]
  - Oropharyngeal pain [Unknown]
